FAERS Safety Report 19642067 (Version 1)
Quarter: 2021Q3

REPORT INFORMATION
  Report Type: Spontaneous
  Country: JP (occurrence: JP)
  Receive Date: 20210731
  Receipt Date: 20210731
  Transmission Date: 20211014
  Serious: Yes (Life-Threatening, Hospitalization, Other)
  Sender: FDA-Public Use
  Company Number: JP-LUPIN PHARMACEUTICALS INC.-2021-13464

PATIENT
  Age: 43 Year
  Sex: Male

DRUGS (4)
  1. METOCLOPRAMIDE. [Suspect]
     Active Substance: METOCLOPRAMIDE
     Indication: NAUSEA
     Dosage: UNK
     Route: 065
  2. PHENTOLAMINE [Concomitant]
     Active Substance: PHENTOLAMINE
     Indication: PHAEOCHROMOCYTOMA CRISIS
     Dosage: 5 MILLIGRAM
     Route: 042
  3. PHENTOLAMINE [Concomitant]
     Active Substance: PHENTOLAMINE
     Dosage: 2 MILLIGRAM
     Route: 042
  4. NICARDIPINE [Concomitant]
     Active Substance: NICARDIPINE
     Indication: PHAEOCHROMOCYTOMA CRISIS
     Dosage: 5 MILLIGRAM
     Route: 065

REACTIONS (3)
  - Stress cardiomyopathy [Recovered/Resolved]
  - Multiple organ dysfunction syndrome [Recovered/Resolved]
  - Phaeochromocytoma crisis [Recovered/Resolved]
